FAERS Safety Report 5392733-8 (Version None)
Quarter: 2007Q3

REPORT INFORMATION
  Report Type: 
  Country: None (occurrence: None)
  Receive Date: 20070720
  Receipt Date: 20070711
  Transmission Date: 20080115
  Serious: Yes (Hospitalization, Disabling)
  Sender: FDA-Public Use
  Company Number: GB-PFIZER INC-2006132590

PATIENT
  Age: 57 Year
  Sex: Male

DRUGS (6)
  1. VIAGRA [Suspect]
     Route: 048
  2. AMITRIPTYLINE HCL [Concomitant]
     Indication: ANALGESIA
     Route: 048
  3. ACETAMINOPHEN [Concomitant]
     Indication: ANALGESIA
     Route: 048
  4. OMEPRAZOLE [Concomitant]
     Indication: ARTHRITIS
  5. RAMIPRIL [Concomitant]
     Indication: HYPERTENSION
     Dosage: DAILY DOSE:2.5MG
     Route: 048
  6. ARTHROTEC [Concomitant]
     Indication: ARTHRITIS
     Route: 048

REACTIONS (5)
  - CEREBROVASCULAR ACCIDENT [None]
  - DISTURBANCE IN ATTENTION [None]
  - INAPPROPRIATE SCHEDULE OF DRUG ADMINISTRATION [None]
  - NAUSEA [None]
  - VOMITING [None]
